FAERS Safety Report 4720706-4 (Version None)
Quarter: 2005Q3

REPORT INFORMATION
  Report Type: 
  Country: None (occurrence: None)
  Receive Date: 20050719
  Receipt Date: 20050707
  Transmission Date: 20060218
  Serious: Yes (Other)
  Sender: FDA-Public Use
  Company Number: 2005-07-0594

PATIENT
  Age: 48 Year
  Sex: Female

DRUGS (2)
  1. PEG-INTRON [Suspect]
     Indication: HEPATITIS C
     Dosage: 150 MG/0.5 ML SUBCUTANEOUS
     Route: 058
     Dates: start: 20041101, end: 20050501
  2. PEG-INTRON [Suspect]
     Indication: HEPATITIS C
     Dosage: 150 MG/0.5 ML
     Dates: start: 20050601

REACTIONS (7)
  - CARDIAC PACEMAKER INSERTION [None]
  - DEVICE FAILURE [None]
  - IMPLANTABLE DEFIBRILLATOR INSERTION [None]
  - MEDICATION ERROR [None]
  - PHARMACEUTICAL PRODUCT COMPLAINT [None]
  - STAPHYLOCOCCAL INFECTION [None]
  - UNDERDOSE [None]
